FAERS Safety Report 7990108-6 (Version None)
Quarter: 2011Q4

REPORT INFORMATION
  Report Type: 
  Country: None (occurrence: None)
  Receive Date: 20111219
  Receipt Date: 20110809
  Transmission Date: 20120403
  Serious: No
  Sender: FDA-Public Use
  Company Number: US-ASTRAZENECA-2011SE47606

PATIENT
  Age: 55 Year
  Sex: Female
  Weight: 54.4 kg

DRUGS (9)
  1. CRESTOR [Suspect]
     Route: 048
  2. BURAGE [Concomitant]
  3. XANEX [Concomitant]
  4. MORTIN [Concomitant]
  5. FLAXIN [Concomitant]
  6. FISH OIL [Concomitant]
  7. ASPIRIN [Concomitant]
  8. VICODIN [Concomitant]
  9. LEXAPRO [Concomitant]

REACTIONS (1)
  - HEPATITIS C [None]
